FAERS Safety Report 20687698 (Version 1)
Quarter: 2022Q2

REPORT INFORMATION
  Report Type: Report from Study
  Country: US (occurrence: US)
  Receive Date: 20220408
  Receipt Date: 20220408
  Transmission Date: 20220721
  Serious: Yes (Other)
  Sender: FDA-Public Use
  Company Number: US-BRISTOL-MYERS SQUIBB COMPANY-2022-015056

PATIENT

DRUGS (2)
  1. ELIQUIS [Suspect]
     Active Substance: APIXABAN
     Indication: Product used for unknown indication
     Dosage: THIS DOSE WAS PRESCRIBED BEFORE THE ONSET OF PULMONARY EMBOLISM
  2. ELIQUIS [Suspect]
     Active Substance: APIXABAN
     Dosage: THIS DOSE WAS PRESCRIBED AFTER THE ONSET OF PULMONARY EMBOLISM

REACTIONS (1)
  - Pulmonary embolism [Unknown]
